FAERS Safety Report 19738066 (Version 2)
Quarter: 2021Q3

REPORT INFORMATION
  Report Type: Spontaneous
  Country: CA (occurrence: CA)
  Receive Date: 20210824
  Receipt Date: 20210827
  Transmission Date: 20211014
  Serious: Yes (Life-Threatening, Hospitalization, Other)
  Sender: FDA-Public Use
  Company Number: CA-STRIDES ARCOLAB LIMITED-2021SP026760

PATIENT
  Age: 20 Year
  Sex: Female
  Weight: 68 kg

DRUGS (3)
  1. OXYCODONE [Suspect]
     Active Substance: OXYCODONE
     Indication: SUICIDE ATTEMPT
     Dosage: 300 MILLIGRAM, TOTAL
     Route: 048
  2. IBUPROFEN. [Suspect]
     Active Substance: IBUPROFEN
     Indication: SUICIDE ATTEMPT
     Dosage: 60 GRAM, TOTAL
     Route: 048
  3. ACETAMINOPHEN. [Suspect]
     Active Substance: ACETAMINOPHEN
     Indication: SUICIDE ATTEMPT
     Dosage: 120 GRAM, TOTAL
     Route: 048

REACTIONS (17)
  - Alanine aminotransferase increased [Recovered/Resolved]
  - Sinus tachycardia [Recovered/Resolved]
  - Blood lactic acid increased [Recovered/Resolved]
  - Metabolic acidosis [Recovered/Resolved]
  - Hyponatraemia [Recovered/Resolved]
  - Intentional overdose [Recovered/Resolved]
  - Toxicity to various agents [Recovered/Resolved]
  - Overdose [Recovered/Resolved]
  - Off label use [Unknown]
  - Hypotension [Recovered/Resolved]
  - Depressed level of consciousness [Recovered/Resolved]
  - Mitochondrial toxicity [Recovered/Resolved]
  - Leukocytosis [Recovered/Resolved]
  - Shock [Recovered/Resolved]
  - Methaemoglobinaemia [Recovered/Resolved]
  - Hypokalaemia [Recovered/Resolved]
  - Abdominal tenderness [Recovered/Resolved]
